FAERS Safety Report 8270510-8 (Version None)
Quarter: 2012Q2

REPORT INFORMATION
  Report Type: 
  Country: None (occurrence: None)
  Receive Date: 20120410
  Receipt Date: 20120402
  Transmission Date: 20120825
  Serious: Yes (Other)
  Sender: FDA-Public Use
  Company Number: JP-ASTELLAS-2012JP002909

PATIENT
  Age: 71 Year
  Sex: Female

DRUGS (3)
  1. VESICARE [Suspect]
     Dosage: 2.5 MG, BID
     Route: 048
     Dates: end: 20110801
  2. NORVASC [Concomitant]
     Indication: BLOOD PRESSURE INCREASED
     Dosage: UNK
     Route: 048
  3. VESICARE [Suspect]
     Dosage: 2.5 MG, UID/QD
     Route: 048

REACTIONS (4)
  - GAIT DISTURBANCE [None]
  - ASCITES [None]
  - VISION BLURRED [None]
  - OEDEMA PERIPHERAL [None]
